FAERS Safety Report 9542254 (Version 1)
Quarter: 2013Q3

REPORT INFORMATION
  Report Type: Spontaneous
  Country: US (occurrence: US)
  Receive Date: 20130923
  Receipt Date: 20130923
  Transmission Date: 20140515
  Serious: Yes (Hospitalization, Other)
  Sender: FDA-Public Use
  Company Number: US-PFIZER INC-2013269270

PATIENT
  Age: 44 Year
  Sex: Male
  Weight: 118 kg

DRUGS (5)
  1. REVATIO [Suspect]
     Indication: CARDIAC DISORDER
     Dosage: 20 MG, 3X/DAY
  2. LASIX [Concomitant]
     Indication: DIURETIC THERAPY
     Dosage: 40 MG, 1X/DAY
  3. LASIX [Concomitant]
     Indication: FLUID RETENTION
  4. ASPIRIN [Concomitant]
     Indication: CARDIAC DISORDER
     Dosage: UNK, 1X/DAY
  5. COUMADINE [Concomitant]
     Indication: ANTICOAGULANT THERAPY
     Dosage: UNK

REACTIONS (3)
  - Gastric infection [Recovering/Resolving]
  - Loss of consciousness [Recovering/Resolving]
  - Blood disorder [Recovering/Resolving]
